FAERS Safety Report 19371976 (Version 2)
Quarter: 2021Q2

REPORT INFORMATION
  Report Type: Spontaneous
  Country: US (occurrence: US)
  Receive Date: 20210603
  Receipt Date: 20210616
  Transmission Date: 20210717
  Serious: Yes (Life-Threatening, Hospitalization)
  Sender: FDA-Public Use
  Company Number: US-TEVA-2021-US-1918800

PATIENT
  Age: 19 Year
  Sex: Female
  Weight: 100 kg

DRUGS (17)
  1. SALINE [Suspect]
     Active Substance: SODIUM CHLORIDE
     Indication: INTRACRANIAL PRESSURE INCREASED
     Dosage: INFUSION AT 75 ML/H
     Route: 050
  2. SALINE [Suspect]
     Active Substance: SODIUM CHLORIDE
     Dosage: SINGLE 120 MEQ BOLUS OF 23.4% HYPERTONIC SODIUM CHLORIDE
     Route: 065
  3. SALINE [Suspect]
     Active Substance: SODIUM CHLORIDE
     Dosage: THREE 120 MEQ BOLUSES OF 23.4% HYPERTONIC SODIUM CHLORIDE
     Route: 065
  4. FENTANYL. [Suspect]
     Active Substance: FENTANYL
     Indication: INTRACRANIAL PRESSURE INCREASED
     Dosage: INFUSION AT 0.5 MICROG/KG/H.
     Route: 050
  5. KETAMINE [Concomitant]
     Active Substance: KETAMINE
     Indication: INTRACRANIAL PRESSURE INCREASED
     Dosage: SINGLE 100 MG BOLUS OF KETAMINE
     Route: 065
  6. MANNITOL. [Concomitant]
     Active Substance: MANNITOL
     Indication: PRODUCT USED FOR UNKNOWN INDICATION
     Dosage: 100G ADMINISTERED OVER 90 MINUTES
     Route: 065
  7. ROCURONIUM [Suspect]
     Active Substance: ROCURONIUM BROMIDE
     Indication: INTRACRANIAL PRESSURE INCREASED
     Dosage: RECEIVED ONE 50MG BOLUS AND ONE 100MG BOLUS
     Route: 065
  8. SALINE [Suspect]
     Active Substance: SODIUM CHLORIDE
     Dosage: ONE 120 MEQ BOLUS OF 23.4% HYPERTONIC SODIUM CHLORIDE
     Route: 065
  9. MIDAZOLAM. [Suspect]
     Active Substance: MIDAZOLAM
     Indication: INTRACRANIAL PRESSURE INCREASED
     Dosage: TITRATED TO A MAX OF 10 MG/H
     Route: 050
  10. HEPARIN [Concomitant]
     Active Substance: HEPARIN SODIUM
     Indication: CEREBRAL VENOUS SINUS THROMBOSIS
     Dosage: INFUSION AT 18 U/KG/H
     Route: 041
  11. MIDAZOLAM. [Suspect]
     Active Substance: MIDAZOLAM
     Dosage: MULTIPLE BOLUSES OF MIDAZOLAM (A TOTAL OF 47MG IN 13 DIVIDED DOSES)
     Route: 050
  12. PENTOBARBITAL. [Suspect]
     Active Substance: PENTOBARBITAL
     Indication: INTRACRANIAL PRESSURE INCREASED
     Dosage: 10MG/KG BOLUS
     Route: 065
  13. PENTOBARBITAL. [Suspect]
     Active Substance: PENTOBARBITAL
     Dosage: 5 MG/KG/H
     Route: 050
  14. PENTOBARBITAL. [Suspect]
     Active Substance: PENTOBARBITAL
     Dosage: THE PENTOBARBITAL INFUSION WAS TITRATED TO AN ICP GOAL OF LESS THAN 20 MMHG
     Route: 050
  15. FENTANYL. [Suspect]
     Active Substance: FENTANYL
     Dosage: TITRATED TO A MAXIMUM DOSE OF 1.5 MICROG/KG/H
     Route: 050
  16. ROCURONIUM [Suspect]
     Active Substance: ROCURONIUM BROMIDE
     Dosage: THREE 100MG BOLUSES OF ROCURONIUM BROMIDE
     Route: 065
  17. FENTANYL. [Suspect]
     Active Substance: FENTANYL
     Dosage: MULTIPLE BOLUSES OF FENTANYL (A TOTAL OF 2050MICROG IN 24 DIVIDED DOSES)
     Route: 050

REACTIONS (8)
  - Hypotension [Unknown]
  - Drug ineffective [Unknown]
  - Abdominal distension [Recovering/Resolving]
  - Metabolic acidosis [Recovered/Resolved]
  - Reaction to excipient [Recovered/Resolved]
  - Acute kidney injury [Recovered/Resolved]
  - Hyperlactacidaemia [Recovered/Resolved]
  - Toxicity to various agents [Unknown]
